FAERS Safety Report 10507257 (Version 9)
Quarter: 2018Q4

REPORT INFORMATION
  Report Type: Report from Study
  Country: US (occurrence: US)
  Receive Date: 20141009
  Receipt Date: 20181126
  Transmission Date: 20190204
  Serious: Yes (Hospitalization, Other)
  Sender: FDA-Public Use
  Company Number: US-SA-2014SA137712

PATIENT
  Age: 54 Year
  Sex: Male

DRUGS (10)
  1. AGALSIDASE BETA [Suspect]
     Active Substance: AGALSIDASE BETA
     Indication: FABRY^S DISEASE
     Dosage: 60 MG,QOW
     Route: 041
     Dates: start: 20041201
  2. AGALSIDASE BETA [Suspect]
     Active Substance: AGALSIDASE BETA
     Dosage: 60 MG,QOW
     Route: 041
     Dates: start: 201409, end: 20141208
  3. LIPITOR [Concomitant]
     Active Substance: ATORVASTATIN CALCIUM
     Dosage: UNK UNK,QD
     Route: 065
  4. PREDNISONE. [Concomitant]
     Active Substance: PREDNISONE
     Dosage: UNK UNK,QD
     Route: 065
  5. WARFARIN SODIUM. [Suspect]
     Active Substance: WARFARIN SODIUM
     Dosage: UNK UNK,UNK
     Route: 065
  6. MEGLUMINE AMIDOTRIZOATE [Concomitant]
     Dosage: 1 DF,QD
     Route: 065
  7. RAMIPRIL. [Concomitant]
     Active Substance: RAMIPRIL
     Dosage: UNK UNK,QD
     Route: 065
  8. AGALSIDASE BETA [Suspect]
     Active Substance: AGALSIDASE BETA
     Dosage: 60 MG,QOW
     Route: 041
     Dates: start: 20140721
  9. AGALSIDASE BETA [Suspect]
     Active Substance: AGALSIDASE BETA
     Dosage: DOSE: 55.00 ; FREQUENCY: Q2
     Route: 041
     Dates: start: 20160825
  10. METOPROLOL. [Concomitant]
     Active Substance: METOPROLOL
     Dosage: UNK UNK,BID
     Route: 065

REACTIONS (33)
  - Carotid artery occlusion [Not Recovered/Not Resolved]
  - Haematochezia [Recovering/Resolving]
  - Gastric perforation [Recovering/Resolving]
  - Sepsis [Recovering/Resolving]
  - Cardiac valve disease [Recovering/Resolving]
  - Decreased appetite [Recovering/Resolving]
  - Cardiac pacemaker insertion [Unknown]
  - Gastrointestinal disorder [Not Recovered/Not Resolved]
  - End stage renal disease [Recovering/Resolving]
  - Thyroid disorder [Recovering/Resolving]
  - Malaise [Not Recovered/Not Resolved]
  - Artificial heart device user [Recovered/Resolved]
  - Haematuria [Not Recovered/Not Resolved]
  - Hospitalisation [Unknown]
  - Aortic valve thickening [Not Recovered/Not Resolved]
  - Haemoglobin decreased [Not Recovered/Not Resolved]
  - Aortic valve stenosis [Not Recovered/Not Resolved]
  - Pleural effusion [Not Recovered/Not Resolved]
  - Oedema peripheral [Not Recovered/Not Resolved]
  - Gastrointestinal arteriovenous malformation [Not Recovered/Not Resolved]
  - Tachycardia [Not Recovered/Not Resolved]
  - Vomiting [Not Recovered/Not Resolved]
  - Haemoptysis [Unknown]
  - Peripheral swelling [Unknown]
  - Weight decreased [Recovering/Resolving]
  - Infection [Unknown]
  - Oedema [Unknown]
  - Neck pain [Recovering/Resolving]
  - Gastrointestinal haemorrhage [Not Recovered/Not Resolved]
  - Vertigo [Not Recovered/Not Resolved]
  - Fatigue [Not Recovered/Not Resolved]
  - Faeces discoloured [Recovering/Resolving]
  - Road traffic accident [Recovering/Resolving]

NARRATIVE: CASE EVENT DATE: 2014
